FAERS Safety Report 20798126 (Version 1)
Quarter: 2022Q2

REPORT INFORMATION
  Report Type: Spontaneous
  Country: GB (occurrence: GB)
  Receive Date: 20220507
  Receipt Date: 20220507
  Transmission Date: 20220721
  Serious: Yes (Other)
  Sender: FDA-Public Use
  Company Number: None

PATIENT
  Age: 54 Year
  Sex: Male

DRUGS (109)
  1. SIMVASTATIN [Suspect]
     Active Substance: SIMVASTATIN
     Indication: Pneumonia
     Dates: start: 2006
  2. SIMVASTATIN [Suspect]
     Active Substance: SIMVASTATIN
     Indication: Ill-defined disorder
     Dosage: 40 MG,QD (DAILY DOSE: 40 MILLIGRAM(S))
     Route: 042
     Dates: start: 2006
  3. AMOXICILLIN [Suspect]
     Active Substance: AMOXICILLIN
     Indication: Ill-defined disorder
     Route: 042
     Dates: start: 20060913
  4. AMOXICILLIN [Suspect]
     Active Substance: AMOXICILLIN
     Indication: Pneumonia
     Dosage: DAILY DOSE: 250 MILLIGRAM(S)
     Route: 048
     Dates: start: 20060913
  5. AMOXICILLIN [Suspect]
     Active Substance: AMOXICILLIN
     Dosage: 1 G,TID (DAILY DOSE: 3 GRAM(S), 1 G, TID), (0.33 DAY)
     Route: 042
     Dates: start: 20060913
  6. AMOXICILLIN [Suspect]
     Active Substance: AMOXICILLIN
     Route: 042
     Dates: start: 20060913
  7. ENOXAPARIN SODIUM [Suspect]
     Active Substance: ENOXAPARIN SODIUM
     Indication: Ill-defined disorder
     Dosage: 20 MG,QD (DAILY DOSE: 20 MILLIGRAM(S))
     Route: 058
     Dates: start: 2006
  8. ENOXAPARIN SODIUM [Suspect]
     Active Substance: ENOXAPARIN SODIUM
     Indication: Pneumonia
  9. TRICLOSAN [Suspect]
     Active Substance: TRICLOSAN
     Indication: Ill-defined disorder
     Dates: start: 2006
  10. TRICLOSAN [Suspect]
     Active Substance: TRICLOSAN
     Indication: Pneumonia
  11. SILVER SULFADIAZENE [Suspect]
     Active Substance: SILVER SULFADIAZINE
     Indication: Ill-defined disorder
     Route: 061
     Dates: start: 2006
  12. SILVER SULFADIAZENE [Suspect]
     Active Substance: SILVER SULFADIAZINE
     Indication: Product used for unknown indication
  13. FUROSEMIDE [Suspect]
     Active Substance: FUROSEMIDE
     Indication: Ill-defined disorder
     Route: 048
     Dates: start: 2006
  14. FUROSEMIDE [Suspect]
     Active Substance: FUROSEMIDE
     Indication: Pneumonia
     Route: 042
  15. LORAZEPAM [Suspect]
     Active Substance: LORAZEPAM
     Indication: Ill-defined disorder
     Dosage: 1-2MG ONCE ONLY
     Dates: start: 2006
  16. LORAZEPAM [Suspect]
     Active Substance: LORAZEPAM
     Indication: Pneumonia
  17. DOBUTAMINE [Suspect]
     Active Substance: DOBUTAMINE HYDROCHLORIDE
     Indication: Ill-defined disorder
     Dates: start: 2006
  18. DOBUTAMINE [Suspect]
     Active Substance: DOBUTAMINE HYDROCHLORIDE
     Indication: Pneumonia
  19. INSULIN HUMAN [Suspect]
     Active Substance: INSULIN HUMAN
     Indication: Toxic epidermal necrolysis
     Dosage: 50 UNITS/50ML
     Route: 042
     Dates: start: 2006
  20. INSULIN HUMAN [Suspect]
     Active Substance: INSULIN HUMAN
     Indication: Pneumonia
  21. SODIUM CHLORIDE [Suspect]
     Active Substance: SODIUM CHLORIDE
     Indication: Ill-defined disorder
     Route: 042
     Dates: start: 2006
  22. ALFENTANIL [Suspect]
     Active Substance: ALFENTANIL
     Indication: Ill-defined disorder
     Route: 042
     Dates: start: 2006
  23. ALFENTANIL [Suspect]
     Active Substance: ALFENTANIL
     Indication: Pneumonia
     Dosage: 120 DOSAGE FORM, INFUSION;
     Route: 042
     Dates: start: 2006
  24. ALFENTANIL [Suspect]
     Active Substance: ALFENTANIL
     Dosage: INFUSION; ;
     Route: 042
  25. OMEPRAZOLE [Suspect]
     Active Substance: OMEPRAZOLE
     Indication: Ill-defined disorder
     Dosage: 40 MG,UNK (DAILY DOSE: 40 MILLIGRAM(S))
     Route: 042
     Dates: start: 2006
  26. CALCIUM GLUCONATE [Suspect]
     Active Substance: CALCIUM GLUCONATE
     Indication: Ill-defined disorder
     Dosage: 10 ML,UNK (DAILY DOSE: 10 MILLILITRE(S))
     Route: 042
     Dates: start: 2006
  27. PROPOFOL [Suspect]
     Active Substance: PROPOFOL
     Indication: Ill-defined disorder
     Dates: start: 2006
  28. PROPOFOL [Suspect]
     Active Substance: PROPOFOL
     Indication: Pneumonia
  29. FRAGMIN [Suspect]
     Active Substance: DALTEPARIN SODIUM
     Indication: Ill-defined disorder
     Route: 058
     Dates: start: 2006
  30. FRAGMIN [Suspect]
     Active Substance: DALTEPARIN SODIUM
     Indication: Product used for unknown indication
     Dosage: 200 INTERNATIONAL UNIT, QD
     Route: 058
  31. FRAGMIN [Suspect]
     Active Substance: DALTEPARIN SODIUM
     Indication: Pneumonia
  32. LANSOPRAZOLE [Suspect]
     Active Substance: LANSOPRAZOLE
     Indication: Ill-defined disorder
     Dates: start: 2006
  33. LANSOPRAZOLE [Suspect]
     Active Substance: LANSOPRAZOLE
     Indication: Pneumonia
  34. ALBUTEROL [Suspect]
     Active Substance: ALBUTEROL
     Indication: Ill-defined disorder
     Dosage: AS NECESSARY
     Dates: start: 2006
  35. THIAMINE [Suspect]
     Active Substance: THIAMINE
     Indication: Ill-defined disorder
     Dosage: 100 MILLIGRAM, QD
     Route: 048
     Dates: start: 2006
  36. MAGNESIUM SULFATE [Suspect]
     Active Substance: MAGNESIUM SULFATE
     Indication: Ill-defined disorder
     Dosage: 10ML/50% 8MMOLS/50MLS
     Dates: start: 2006
  37. MAGNESIUM SULFATE [Suspect]
     Active Substance: MAGNESIUM SULFATE
     Indication: Pneumonia
  38. CHLORPHENIRAMINE MALEATE [Suspect]
     Active Substance: CHLORPHENIRAMINE MALEATE
     Indication: Ill-defined disorder
     Route: 042
     Dates: start: 2006
  39. ACETAMINOPHEN [Suspect]
     Active Substance: ACETAMINOPHEN
     Indication: Ill-defined disorder
     Dates: start: 2006
  40. ACETAMINOPHEN [Suspect]
     Active Substance: ACETAMINOPHEN
     Indication: Pneumonia
  41. VITAMIN K [Suspect]
     Active Substance: PHYTONADIONE
     Indication: Ill-defined disorder
     Dates: start: 2006
  42. POTASSIUM PHOSPHATE [Suspect]
     Active Substance: POTASSIUM PHOSPHATE
     Indication: Ill-defined disorder
     Dates: start: 2006
  43. FLUCONAZOLE [Suspect]
     Active Substance: FLUCONAZOLE
     Indication: Ill-defined disorder
     Route: 042
     Dates: start: 2006
  44. FLUCONAZOLE [Suspect]
     Active Substance: FLUCONAZOLE
     Indication: Pneumonia
     Dosage: 20 MILLIGRAM, QD
     Route: 042
     Dates: start: 2006
  45. TINZAPARIN [Suspect]
     Active Substance: TINZAPARIN
     Indication: Ill-defined disorder
     Dates: start: 2006
  46. LACTULOSE [Suspect]
     Active Substance: LACTULOSE
     Indication: Ill-defined disorder
     Dosage: 10 ML,UNK (DAILY DOSE: 10 MILLILITRE(S))
     Route: 065
     Dates: start: 2006
  47. LACTULOSE [Suspect]
     Active Substance: LACTULOSE
     Indication: Pneumonia
  48. POTASSIUM CHLORIDE [Suspect]
     Active Substance: POTASSIUM CHLORIDE
     Indication: Ill-defined disorder
     Dosage: 6 DOSAGE FORM, 2 DF, TID
     Route: 061
  49. POTASSIUM CHLORIDE [Suspect]
     Active Substance: POTASSIUM CHLORIDE
     Indication: Product used for unknown indication
  50. POTASSIUM CHLORIDE [Suspect]
     Active Substance: POTASSIUM CHLORIDE
     Dosage: 2 DF,TID (DAILY DOSE: 6 DOSAGE FORM, 2 DF, TID)
     Route: 061
     Dates: start: 2006
  51. SODIUM BICARBONATE [Suspect]
     Active Substance: SODIUM BICARBONATE
     Indication: Ill-defined disorder
     Dosage: ADMINISTRATION OVER AN HOUR
     Route: 042
     Dates: start: 2006
  52. SODIUM BICARBONATE [Suspect]
     Active Substance: SODIUM BICARBONATE
     Indication: Pneumonia
     Dosage: 100 MG,BIWEEKLY
     Route: 042
  53. CALCIUM CHLORIDE [Suspect]
     Active Substance: CALCIUM CHLORIDE
     Indication: Ill-defined disorder
     Dates: start: 2006
  54. CALCIUM CHLORIDE [Suspect]
     Active Substance: CALCIUM CHLORIDE
     Indication: Pneumonia
     Route: 042
  55. BACTROBAN [Suspect]
     Active Substance: MUPIROCIN\MUPIROCIN CALCIUM
     Indication: Ill-defined disorder
     Dates: start: 2006
  56. BACTROBAN [Suspect]
     Active Substance: MUPIROCIN\MUPIROCIN CALCIUM
     Indication: Pneumonia
  57. NOREPINEPHRINE [Suspect]
     Active Substance: NOREPINEPHRINE
     Indication: Ill-defined disorder
     Dates: start: 2006
  58. HYDROCORTISONE [Suspect]
     Active Substance: HYDROCORTISONE
     Indication: Ill-defined disorder
     Dosage: 100 MG,UNK (DAILY DOSE TEXT: 100MG 1 TOTAL)
     Route: 042
     Dates: start: 2006
  59. HYDROCORTISONE [Suspect]
     Active Substance: HYDROCORTISONE
     Indication: Pneumonia
  60. HEPARIN SODIUM [Suspect]
     Active Substance: HEPARIN SODIUM
     Indication: Product used for unknown indication
  61. PHYTONADIONE [Suspect]
     Active Substance: PHYTONADIONE
     Indication: Ill-defined disorder
     Dates: start: 2006
  62. ROCEPHIN [Suspect]
     Active Substance: CEFTRIAXONE SODIUM
     Indication: Ill-defined disorder
     Route: 042
     Dates: start: 2006
  63. POTASSIUM CHLORIDE [Suspect]
     Active Substance: POTASSIUM CHLORIDE
     Indication: Ill-defined disorder
     Dosage: 40MMOLS/100ML INFUSION
     Dates: start: 2006
  64. POTASSIUM CHLORIDE [Suspect]
     Active Substance: POTASSIUM CHLORIDE
     Indication: Pneumonia
     Dosage: UNK UNK, QD (40MMOLS/100ML INFUSION)
     Dates: start: 2006
  65. CEFTRIAXONE [Suspect]
     Active Substance: CEFTRIAXONE
     Indication: Pneumonia
     Dosage: 2 GRAM
     Route: 042
  66. CHLORPHENIRAMINE MALEATE [Suspect]
     Active Substance: CHLORPHENIRAMINE MALEATE
     Indication: Pneumonia
     Dosage: 10 MG,QID (DAILY DOSE: 40 MILLIGRAM(S), 10 MG, QID)
     Route: 042
     Dates: start: 2006
  67. CHLORPHENIRAMINE MALEATE [Suspect]
     Active Substance: CHLORPHENIRAMINE MALEATE
     Indication: Ill-defined disorder
     Dosage: 10 MG,QID (DAILY DOSE: 40 MILLIGRAM(S), 10 MG, QID)
     Route: 042
     Dates: start: 2006
  68. ENOXAPARIN [Suspect]
     Active Substance: ENOXAPARIN
     Indication: Product used for unknown indication
     Dosage: 20 MILLIGRAM, QD
     Route: 065
  69. SILVER SULFADIAZINE [Suspect]
     Active Substance: SILVER SULFADIAZINE
     Indication: Ill-defined disorder
     Route: 061
     Dates: start: 2006
  70. NOREPINEPHRINE [Suspect]
     Active Substance: NOREPINEPHRINE
     Indication: Pneumonia
     Route: 065
     Dates: start: 2006
  71. POTASSIUM PHOSPHATE, DIBASIC [Suspect]
     Active Substance: POTASSIUM PHOSPHATE, DIBASIC
     Indication: Ill-defined disorder
     Dates: start: 2006
  72. POTASSIUM PHOSPHATE, DIBASIC [Suspect]
     Active Substance: POTASSIUM PHOSPHATE, DIBASIC
     Indication: Pneumonia
  73. SILVER SULFADIAZINE [Suspect]
     Active Substance: SILVER SULFADIAZINE
     Indication: Pneumonia
     Dates: start: 2006
  74. TRICLOSAN [Suspect]
     Active Substance: TRICLOSAN
     Indication: Product used for unknown indication
  75. VITAMIN K [Suspect]
     Active Substance: PHYTONADIONE
     Indication: Ill-defined disorder
     Dates: start: 2006
  76. VITAMIN K [Suspect]
     Active Substance: PHYTONADIONE
     Indication: Pneumonia
  77. LANSOPRAZOLE [Suspect]
     Active Substance: LANSOPRAZOLE
     Indication: Ill-defined disorder
     Dosage: 30 MG,UNK (DAILY DOSE: 30 MILLIGRAM(S))
     Dates: start: 2006
  78. ANHYDROUS CITRIC ACID [Suspect]
     Active Substance: ANHYDROUS CITRIC ACID
     Indication: Pneumonia
     Dosage: 100 MG, QD
     Dates: start: 2006
  79. ANHYDROUS CITRIC ACID [Suspect]
     Active Substance: ANHYDROUS CITRIC ACID
     Indication: Ill-defined disorder
     Dosage: 100 MG, QD
  80. ASPIRIN [Suspect]
     Active Substance: ASPIRIN
     Dosage: UNK
     Route: 048
  81. BACTROBAN [Suspect]
     Active Substance: MUPIROCIN\MUPIROCIN CALCIUM
     Indication: Pneumonia
     Dosage: UNK,50 UNITS/50ML
     Route: 042
     Dates: start: 2006
  82. CANRENOIC ACID [Suspect]
     Active Substance: CANRENOIC ACID
     Indication: Ill-defined disorder
  83. CITRIC ACID MONOHYDRATE\SODIUM BICARBONATE\TARTARIC ACID [Suspect]
     Active Substance: CITRIC ACID MONOHYDRATE\SODIUM BICARBONATE\TARTARIC ACID
     Indication: Pneumonia
     Dosage: 100 MILLIGRAM, ONCE A DAY
     Route: 048
     Dates: start: 2006
  84. DALTEPARIN SODIUM [Suspect]
     Active Substance: DALTEPARIN SODIUM
  85. GLUTAMIC ACID [Suspect]
     Active Substance: GLUTAMIC ACID
     Indication: Ill-defined disorder
  86. INNOHEP [Suspect]
     Active Substance: TINZAPARIN SODIUM
     Indication: Ill-defined disorder
     Dosage: 3500 MICROGRAM, ONCE A DAY(3500 MICROGRAM, QD)
     Dates: start: 2006
  87. MAGNESIUM SULFATE [Suspect]
     Active Substance: MAGNESIUM SULFATE
     Indication: Ill-defined disorder
     Dosage: 10 MILLILITER
  88. MUPIROCIN [Suspect]
     Active Substance: MUPIROCIN
     Indication: Pneumonia
     Dates: start: 2006
  89. MAGNESIUM HYDROXIDE [Suspect]
     Active Substance: MAGNESIUM HYDROXIDE
     Indication: Ill-defined disorder
  90. RIBOFLAVIN [Suspect]
     Active Substance: RIBOFLAVIN
     Indication: Ill-defined disorder
  91. NOREPINEPHRINE [Suspect]
     Active Substance: NOREPINEPHRINE
     Indication: Ill-defined disorder
  92. NICOTINAMIDE [Suspect]
     Active Substance: NIACINAMIDE
     Indication: Ill-defined disorder
  93. SODIUM BICARBONATE [Suspect]
     Active Substance: SODIUM BICARBONATE
  94. CIPROFLOXACIN [Concomitant]
     Active Substance: CIPROFLOXACIN
     Indication: Ill-defined disorder
     Dosage: 400 MILLIGRAM, QD (DAILY DOSE: 400 MILLIGRAM(S))
     Route: 042
  95. PANTOPRAZOLE [Concomitant]
     Active Substance: PANTOPRAZOLE
     Indication: Ill-defined disorder
     Route: 042
  96. PIPERACILLIN SODIUM\TAZOBACTAM SODIUM [Concomitant]
     Active Substance: PIPERACILLIN SODIUM\TAZOBACTAM SODIUM
     Indication: Ill-defined disorder
     Dosage: INCREASED TO 4 TIMES DAILY BETWEEN 04/10/2006 AND 09/10/2006
     Route: 042
  97. PIPERACILLIN SODIUM\TAZOBACTAM SODIUM [Concomitant]
     Active Substance: PIPERACILLIN SODIUM\TAZOBACTAM SODIUM
     Dosage: INCREASED TO 4 TIMES DAILY BETWEEN 04/10/2006 AND 09/10/2006
     Route: 042
  98. METOCLOPRAMIDE [Concomitant]
     Active Substance: METOCLOPRAMIDE
     Indication: Ill-defined disorder
     Route: 042
  99. MIDODRINE [Concomitant]
     Active Substance: MIDODRINE
     Indication: Ill-defined disorder
     Route: 048
  100. ZOPICLONE [Concomitant]
     Active Substance: ZOPICLONE
     Indication: Ill-defined disorder
     Route: 048
  101. ASPIRIN [Concomitant]
     Active Substance: ASPIRIN
     Indication: Ill-defined disorder
     Route: 048
  102. AMOXICILLIN\CLAVULANATE POTASSIUM [Concomitant]
     Active Substance: AMOXICILLIN\CLAVULANATE POTASSIUM
     Dates: start: 20060913
  103. AMOXICILLIN\CLAVULANATE POTASSIUM [Concomitant]
     Active Substance: AMOXICILLIN\CLAVULANATE POTASSIUM
     Dosage: 375 MILLIGRAM, Q8H (DAILY DOSE TEXT: 375MG 3/1DAYS), TID
     Dates: start: 20060913
  104. ATROVENT [Concomitant]
     Active Substance: IPRATROPIUM BROMIDE
     Indication: Ill-defined disorder
     Dosage: AS NECESSARY
     Route: 048
  105. VANCOMYCIN [Concomitant]
     Active Substance: VANCOMYCIN
     Indication: Ill-defined disorder
     Dosage: 1 GRAM, QD (DAILY DOSE TEXT: 1G 1/1DAYS)
     Route: 042
  106. ERYTHROMYCIN [Concomitant]
     Active Substance: ERYTHROMYCIN
     Indication: Ill-defined disorder
     Dosage: 250 MILLIGRAM (DAILY DOSE: 250 MILLIGRAM(S))
  107. AMOXICILLIN [Concomitant]
     Active Substance: AMOXICILLIN
     Indication: Ill-defined disorder
     Route: 048
     Dates: start: 20060913
  108. IPRATROPIUM BROMIDE [Concomitant]
     Active Substance: IPRATROPIUM BROMIDE
  109. CLAVULANATE POTASSIUM [Concomitant]
     Active Substance: CLAVULANATE POTASSIUM
     Dosage: 875 MILLIGRAM, ONCE A DAY
     Dates: start: 20060913

REACTIONS (5)
  - Toxic epidermal necrolysis [Unknown]
  - Drug hypersensitivity [Unknown]
  - Off label use [Unknown]
  - Off label use [Unknown]
  - Product use in unapproved indication [Unknown]

NARRATIVE: CASE EVENT DATE: 20060101
